FAERS Safety Report 9338292 (Version 1)
Quarter: 2013Q2

REPORT INFORMATION
  Report Type: Spontaneous
  Country: NO (occurrence: NO)
  Receive Date: 20130610
  Receipt Date: 20130610
  Transmission Date: 20140414
  Serious: Yes (Other)
  Sender: FDA-Public Use
  Company Number: NO-AMGEN-NORSP2013040401

PATIENT
  Age: 57 Year
  Sex: Female

DRUGS (3)
  1. ENBREL [Suspect]
     Indication: PRODUCT USED FOR UNKNOWN INDICATION
     Dosage: 50 MG, WEEKLY
     Route: 058
     Dates: start: 200512, end: 20130504
  2. VOLTAREN                           /00372302/ [Concomitant]
     Dosage: 50 MG, AS NEEDED
     Route: 048
  3. PARACETAMOL [Concomitant]
     Dosage: AS NEEDED

REACTIONS (1)
  - Intraductal proliferative breast lesion [Not Recovered/Not Resolved]
